FAERS Safety Report 8093208-8 (Version None)
Quarter: 2012Q1

REPORT INFORMATION
  Report Type: 
  Country: None (occurrence: None)
  Receive Date: 20120128
  Receipt Date: 20111027
  Transmission Date: 20120608
  Serious: No
  Sender: FDA-Public Use
  Company Number: US-ABBOTT-11P-163-0696211-00

PATIENT
  Sex: Male
  Weight: 77.18 kg

DRUGS (11)
  1. HUMIRA [Suspect]
     Indication: CROHN'S DISEASE
     Route: 058
     Dates: start: 20050101
  2. OMEPRAZOLE [Concomitant]
     Indication: GASTROOESOPHAGEAL REFLUX DISEASE
     Dosage: BID
  3. TIZANIDINE HCL [Concomitant]
     Indication: MUSCLE SPASMS
     Dosage: DAILY
  4. DOXEPIN [Concomitant]
     Indication: SLEEP DISORDER THERAPY
     Dosage: PRN
  5. MILK THISTLE [Concomitant]
     Indication: HEPATIC FUNCTION ABNORMAL
  6. MULTIVITAMIN [Concomitant]
     Indication: VITAMIN SUPPLEMENTATION
  7. SULFASALAZINE [Concomitant]
     Indication: INFLAMMATION
     Dosage: 2 TABS TID
  8. ASACOL [Concomitant]
     Indication: CROHN'S DISEASE
     Route: 048
  9. TRAMADOL HCL [Concomitant]
     Indication: PAIN
     Dosage: QID
  10. OXYCODONE HCL AND ACETAMINOPHEN [Concomitant]
     Indication: PAIN
     Dosage: QID
  11. FLORA-Q PROBIOTIC [Concomitant]
     Indication: PRODUCT USED FOR UNKNOWN INDICATION
     Dosage: 1 CAP BID

REACTIONS (1)
  - TOOTH ABSCESS [None]
